FAERS Safety Report 6463809-9 (Version None)
Quarter: 2009Q4

REPORT INFORMATION
  Report Type: 
  Country: None (occurrence: None)
  Receive Date: 20091201
  Receipt Date: 20091121
  Transmission Date: 20100525
  Serious: Yes (Other)
  Sender: FDA-Public Use
  Company Number: US-JNJFOC-20091107016

PATIENT
  Sex: Female

DRUGS (2)
  1. LEVAQUIN [Suspect]
     Route: 048
     Dates: start: 20091107, end: 20091120
  2. LEVAQUIN [Suspect]
     Indication: SINUSITIS
     Route: 048
     Dates: start: 20091107, end: 20091120

REACTIONS (4)
  - CONTUSION [None]
  - DRUG EFFECT DECREASED [None]
  - FEELING ABNORMAL [None]
  - PLATELET COUNT DECREASED [None]
